FAERS Safety Report 9409722 (Version 1)
Quarter: 2013Q3

REPORT INFORMATION
  Report Type: Report from Study
  Country: SG (occurrence: SG)
  Receive Date: 20130719
  Receipt Date: 20130719
  Transmission Date: 20140515
  Serious: No
  Sender: FDA-Public Use
  Company Number: PHHY2013SG076874

PATIENT
  Age: 44 Year
  Sex: Male

DRUGS (4)
  1. TASIGNA [Suspect]
     Indication: CHRONIC MYELOID LEUKAEMIA
     Dosage: 600 MG, PER DAY
     Route: 048
     Dates: start: 20120419
  2. TASIGNA [Suspect]
     Dosage: 450 MG, PER DAY
     Route: 048
  3. AMLODIPINE [Concomitant]
     Dosage: 10 MG, UNK
     Route: 048
  4. LEVOTHYROXINE SODIUM [Concomitant]

REACTIONS (2)
  - Nausea [Not Recovered/Not Resolved]
  - Abdominal distension [Not Recovered/Not Resolved]
